FAERS Safety Report 9821154 (Version 1)
Quarter: 2013Q4

REPORT INFORMATION
  Report Type: Spontaneous
  Country: US (occurrence: None)
  Receive Date: 20131028
  Receipt Date: 20131028
  Transmission Date: 20140711
  Serious: Yes (Hospitalization)
  Sender: FDA-Public Use
  Company Number: 2013US001474

PATIENT
  Age: 61 Year
  Sex: Male
  Weight: 112.04 kg

DRUGS (4)
  1. ICLUSIG (PONATINIB) TABLET, 45MG [Suspect]
     Indication: CHRONIC MYELOID LEUKAEMIA
     Route: 048
     Dates: start: 20130323, end: 20130327
  2. FLUCONAZOLE (FLUCONAZOLE) [Concomitant]
  3. ACYCLOVIR (ACYCLOVIR) [Concomitant]
  4. LEVOFLOXACIN (LEVOFLOXACIN) [Concomitant]

REACTIONS (2)
  - Blast cell crisis [None]
  - Epistaxis [None]
